FAERS Safety Report 10438358 (Version 2)
Quarter: 2014Q3

REPORT INFORMATION
  Report Type: Spontaneous
  Country: US (occurrence: US)
  Receive Date: 20140908
  Receipt Date: 20140908
  Transmission Date: 20150326
  Serious: No
  Sender: FDA-Public Use
  Company Number: US-BRISTOL-MYERS SQUIBB COMPANY-19846922

PATIENT
  Age: 62 Year
  Sex: Female
  Weight: 58.96 kg

DRUGS (2)
  1. LEXAPRO [Concomitant]
     Active Substance: ESCITALOPRAM OXALATE
  2. ABILIFY [Suspect]
     Active Substance: ARIPIPRAZOLE
     Indication: BIPOLAR DISORDER
     Dosage: INITIALLY 2MG, THEN 5 MG AND NOW 5MG IS SPLIT TO 2.5 MG AND TAKEN
     Route: 048

REACTIONS (3)
  - Anxiety [Unknown]
  - Wrong technique in drug usage process [Unknown]
  - Muscle tightness [Unknown]
